FAERS Safety Report 9965315 (Version 1)
Quarter: 2014Q1

REPORT INFORMATION
  Report Type: Report from Study
  Country: US (occurrence: US)
  Receive Date: 20140305
  Receipt Date: 20140305
  Transmission Date: 20141002
  Serious: Yes (Other)
  Sender: FDA-Public Use
  Company Number: US-ABBVIE-13P-163-1126326-00

PATIENT
  Age: 40 Year
  Sex: Female
  Weight: 111.68 kg

DRUGS (7)
  1. HUMIRA [Suspect]
     Indication: RHEUMATOID ARTHRITIS
     Route: 058
     Dates: start: 2010, end: 201207
  2. HUMIRA [Suspect]
     Route: 058
     Dates: start: 201207
  3. GABAPENTIN [Concomitant]
     Indication: BRAIN NEOPLASM
  4. LISINOPRIL [Concomitant]
     Indication: BLOOD PRESSURE
  5. AMBIEN [Concomitant]
     Indication: INSOMNIA
  6. TOPAMAX [Concomitant]
     Indication: PRODUCT USED FOR UNKNOWN INDICATION
  7. MIGRAINE MEDICINE [Concomitant]
     Indication: MIGRAINE

REACTIONS (3)
  - Tendon disorder [Recovering/Resolving]
  - Arthritis [Recovered/Resolved]
  - Urinary tract infection [Recovering/Resolving]
